FAERS Safety Report 21767460 (Version 1)
Quarter: 2022Q4

REPORT INFORMATION
  Report Type: Spontaneous
  Country: GB (occurrence: GB)
  Receive Date: 20221222
  Receipt Date: 20221222
  Transmission Date: 20230113
  Serious: Yes (Hospitalization)
  Sender: FDA-Public Use
  Company Number: GB-BIOVITRUM-2022GB15182

PATIENT

DRUGS (1)
  1. ANAKINRA [Suspect]
     Active Substance: ANAKINRA
     Indication: Autoinflammatory disease

REACTIONS (3)
  - Vomiting [Unknown]
  - Dehydration [Unknown]
  - Off label use [Unknown]
